FAERS Safety Report 10026403 (Version 1)
Quarter: 2014Q1

REPORT INFORMATION
  Report Type: Spontaneous
  Country: ES (occurrence: ES)
  Receive Date: 20140321
  Receipt Date: 20140321
  Transmission Date: 20141002
  Serious: Yes (Hospitalization)
  Sender: FDA-Public Use
  Company Number: ES-ROCHE-1363316

PATIENT
  Age: 69 Year
  Sex: Male

DRUGS (6)
  1. AVASTIN [Suspect]
     Indication: COLON CANCER
     Route: 042
     Dates: start: 20130506, end: 20130506
  2. XELODA [Suspect]
     Indication: COLON CANCER
     Route: 065
     Dates: start: 20130506, end: 20130520
  3. KYTRIL [Suspect]
     Indication: VOMITING
     Route: 042
     Dates: start: 20130506, end: 20130506
  4. OXALIPLATIN [Suspect]
     Indication: COLON CANCER
     Route: 042
     Dates: start: 20130506, end: 20130506
  5. DEXAMETHASONE [Suspect]
     Indication: COLON CANCER
     Route: 042
     Dates: start: 20130506, end: 20130506
  6. FORTECORTIN [Suspect]
     Indication: COLON CANCER
     Route: 048
     Dates: start: 20130506, end: 20130508

REACTIONS (4)
  - Renal failure acute [Recovered/Resolved]
  - Diarrhoea [Recovered/Resolved]
  - Hypomagnesaemia [Recovered/Resolved]
  - Hypokalaemia [Recovered/Resolved]
